FAERS Safety Report 4985837-2 (Version None)
Quarter: 2006Q2

REPORT INFORMATION
  Report Type: 
  Country: None (occurrence: None)
  Receive Date: 20060421
  Receipt Date: 20060417
  Transmission Date: 20061013
  Serious: Yes (Hospitalization, Disabling, Other)
  Sender: FDA-Public Use
  Company Number: 2006034075

PATIENT
  Age: 62 Year
  Sex: Female

DRUGS (2)
  1. FELDENE [Suspect]
     Indication: ARTHRALGIA
     Dosage: 20 MG (20 MG, DAILY INTERVAL:  EVERY DAY), ORAL
     Route: 048
     Dates: start: 20050619, end: 20050624
  2. FELDENE [Suspect]
     Indication: INFLAMMATION
     Dosage: 20 MG (20 MG, DAILY INTERVAL:  EVERY DAY), ORAL
     Route: 048
     Dates: start: 20050619, end: 20050624

REACTIONS (21)
  - BLINDNESS [None]
  - CORNEAL PERFORATION [None]
  - DARK CIRCLES UNDER EYES [None]
  - DIARRHOEA [None]
  - DRUG HYPERSENSITIVITY [None]
  - GASTROINTESTINAL DISORDER [None]
  - GENITAL INFECTION [None]
  - GENITAL INJURY [None]
  - HYPOACUSIS [None]
  - INFECTION [None]
  - INJURY [None]
  - OESOPHAGEAL DISORDER [None]
  - OESOPHAGEAL INFECTION [None]
  - ORAL DISCOMFORT [None]
  - SWELLING FACE [None]
  - THERMAL BURN [None]
  - TOXIC EPIDERMAL NECROLYSIS [None]
  - TRACHEAL DISORDER [None]
  - TRACHEAL ULCER [None]
  - TRANSPLANT [None]
  - WEIGHT DECREASED [None]
